FAERS Safety Report 26189932 (Version 1)
Quarter: 2025Q4

REPORT INFORMATION
  Report Type: Spontaneous
  Country: EU (occurrence: EU)
  Receive Date: 20251223
  Receipt Date: 20251223
  Transmission Date: 20260119
  Serious: Yes (Hospitalization)
  Sender: BOEHRINGER INGELHEIM
  Company Number: EU-BoehringerIngelheim-2025-BI-115532

PATIENT
  Age: 69 Year
  Sex: Male

DRUGS (3)
  1. EMPAGLIFLOZIN\METFORMIN HYDROCHLORIDE [Suspect]
     Active Substance: EMPAGLIFLOZIN\METFORMIN HYDROCHLORIDE
     Indication: Product used for unknown indication
     Dosage: 12.5MG+1000MG
  2. ROSUVASTATIN [Concomitant]
     Active Substance: ROSUVASTATIN
     Indication: Product used for unknown indication
  3. ramipril + amlodipine 10mg+5mg [Concomitant]
     Indication: Product used for unknown indication

REACTIONS (8)
  - Neurosyphilis [Recovered/Resolved]
  - Insomnia [Unknown]
  - Condition aggravated [Unknown]
  - Weight decreased [Unknown]
  - Agitation [Unknown]
  - Aggression [Unknown]
  - Refusal of treatment by patient [Unknown]
  - Syphilis [Unknown]
